FAERS Safety Report 9159336 (Version 1)
Quarter: 2013Q1

REPORT INFORMATION
  Report Type: Report from Study
  Country: BR (occurrence: BR)
  Receive Date: 20130313
  Receipt Date: 20130313
  Transmission Date: 20140127
  Serious: Yes (Death, Hospitalization)
  Sender: FDA-Public Use
  Company Number: BR-ABBOTT-13P-020-1054821-00

PATIENT
  Age: 77 None
  Sex: Male

DRUGS (1)
  1. HUMIRA [Suspect]
     Indication: RHEUMATOID ARTHRITIS
     Route: 058
     Dates: start: 20120315

REACTIONS (9)
  - Cerebrovascular accident [Fatal]
  - Urinary tract infection [Unknown]
  - Lung infection [Unknown]
  - Hospitalisation [Unknown]
  - Infection [Unknown]
  - Pneumonia [Unknown]
  - Bronchospasm [Unknown]
  - Urinary tract infection [Unknown]
  - Immunodeficiency [Unknown]
